FAERS Safety Report 5605468-0 (Version None)
Quarter: 2008Q1

REPORT INFORMATION
  Report Type: 
  Country: None (occurrence: None)
  Receive Date: 20080124
  Receipt Date: 20080124
  Transmission Date: 20080703
  Serious: Yes (Hospitalization)
  Sender: FDA-Public Use
  Company Number: None

PATIENT
  Sex: Female
  Weight: 67.4 kg

DRUGS (1)
  1. FEMARA [Suspect]
     Dosage: 2.5 MG

REACTIONS (6)
  - COMPLEX PARTIAL SEIZURES [None]
  - CONTUSION [None]
  - FALL [None]
  - GRAND MAL CONVULSION [None]
  - LIMB INJURY [None]
  - SUBDURAL HAEMATOMA [None]
